FAERS Safety Report 9580691 (Version 1)
Quarter: 2013Q3

REPORT INFORMATION
  Report Type: Spontaneous
  Country: US (occurrence: None)
  Receive Date: 20130916
  Receipt Date: 20130916
  Transmission Date: 20140515
  Serious: Yes (Other)
  Sender: FDA-Public Use
  Company Number: JPI-P-033836

PATIENT
  Age: 25 Year
  Sex: Female
  Weight: 57.15 kg

DRUGS (3)
  1. XYREM [Suspect]
     Indication: CATAPLEXY
     Route: 048
     Dates: start: 20130503, end: 2013
  2. CITALOPRAM HYDROBROMIDE (UNKNOWN) [Suspect]
     Indication: DEPRESSION
     Route: 048
     Dates: start: 201305, end: 201306
  3. VALACYCLOVIR HYDROCHLORIDE [Concomitant]

REACTIONS (8)
  - Weight decreased [None]
  - Condition aggravated [None]
  - Protein urine present [None]
  - Gingival recession [None]
  - Gait disturbance [None]
  - Drug hypersensitivity [None]
  - Asthenia [None]
  - Arthralgia [None]
